FAERS Safety Report 4685573-6 (Version None)
Quarter: 2005Q2

REPORT INFORMATION
  Report Type: 
  Country: None (occurrence: None)
  Receive Date: 20050607
  Receipt Date: 20050607
  Transmission Date: 20051028
  Serious: Yes (Life-Threatening)
  Sender: FDA-Public Use
  Company Number: None

PATIENT
  Age: 65 Year
  Sex: Male

DRUGS (2)
  1. GATIFLOXACIN [Suspect]
  2. LEVOFLOXACIN [Suspect]

REACTIONS (1)
  - BRONCHOSPASM [None]
